FAERS Safety Report 5492671-6 (Version None)
Quarter: 2007Q4

REPORT INFORMATION
  Report Type: 
  Country: None (occurrence: None)
  Receive Date: 20071022
  Receipt Date: 20071010
  Transmission Date: 20080405
  Serious: Yes (Other)
  Sender: FDA-Public Use
  Company Number: US-PFIZER INC-2007085959

PATIENT
  Age: 90 Year

DRUGS (1)
  1. LYRICA [Suspect]

REACTIONS (3)
  - AMNESIA [None]
  - CONFUSIONAL STATE [None]
  - PSYCHOTIC DISORDER [None]
